FAERS Safety Report 5254978-7 (Version None)
Quarter: 2007Q1

REPORT INFORMATION
  Report Type: 
  Country: None (occurrence: None)
  Receive Date: 20070305
  Receipt Date: 20070301
  Transmission Date: 20070707
  Serious: Yes (Life-Threatening, Hospitalization)
  Sender: FDA-Public Use
  Company Number: JP-BRISTOL-MYERS SQUIBB COMPANY-13674932

PATIENT
  Age: 31 Year
  Sex: Female

DRUGS (5)
  1. VEPESID [Suspect]
     Indication: CHORIOCARCINOMA
     Route: 041
     Dates: start: 20040322, end: 20040615
  2. ENDOXAN [Suspect]
     Indication: CHORIOCARCINOMA
     Route: 042
     Dates: start: 20040322, end: 20040615
  3. METHOTREXATE [Suspect]
     Indication: CHORIOCARCINOMA
     Route: 042
     Dates: start: 20040322, end: 20040615
  4. DACTINOMYCIN [Suspect]
     Indication: CHORIOCARCINOMA
     Route: 042
     Dates: start: 20040322, end: 20040615
  5. ONCOVIN [Suspect]
     Indication: CHORIOCARCINOMA
     Route: 042
     Dates: start: 20040322, end: 20040615

REACTIONS (1)
  - INTERSTITIAL LUNG DISEASE [None]
